FAERS Safety Report 9228880 (Version 1)
Quarter: 2013Q2

REPORT INFORMATION
  Report Type: Spontaneous
  Country: JP (occurrence: JP)
  Receive Date: 20130412
  Receipt Date: 20130412
  Transmission Date: 20140414
  Serious: Yes (Other)
  Sender: FDA-Public Use
  Company Number: JP-BAXTER-2013BAX013523

PATIENT
  Age: 79 Year
  Sex: Male

DRUGS (10)
  1. CYCLOPHOSPHAMIDE FOR INJECTION, USP [Suspect]
     Indication: METASTASES TO LYMPH NODES
  2. CYCLOPHOSPHAMIDE FOR INJECTION, USP [Suspect]
     Indication: MYCOSIS FUNGOIDES
  3. PREDNISOLONE [Suspect]
     Indication: METASTASES TO LYMPH NODES
  4. PREDNISOLONE [Suspect]
     Indication: MYCOSIS FUNGOIDES
  5. VINCRISTINE SULFATE [Suspect]
     Indication: METASTASES TO LYMPH NODES
  6. VINCRISTINE SULFATE [Suspect]
     Indication: MYCOSIS FUNGOIDES
  7. PIRARUBICIN HYDROCHLORIDE [Suspect]
     Indication: MYCOSIS FUNGOIDES
  8. PIRARUBICIN HYDROCHLORIDE [Suspect]
     Indication: METASTASES TO LYMPH NODES
  9. ETOPOSIDE [Suspect]
     Indication: MYCOSIS FUNGOIDES
  10. ETOPOSIDE [Suspect]
     Indication: METASTASES TO LYMPH NODES

REACTIONS (1)
  - Deep vein thrombosis [Recovered/Resolved]
